FAERS Safety Report 23094181 (Version 2)
Quarter: 2024Q1

REPORT INFORMATION
  Report Type: Report from Study
  Country: US (occurrence: US)
  Receive Date: 20231023
  Receipt Date: 20240102
  Transmission Date: 20240410
  Serious: Yes (Other)
  Sender: FDA-Public Use
  Company Number: US-ABBVIE-5457680

PATIENT
  Sex: Female

DRUGS (1)
  1. HUMIRA [Suspect]
     Active Substance: ADALIMUMAB
     Indication: Hidradenitis
     Route: 058
     Dates: start: 20210803

REACTIONS (11)
  - Spinal operation [Recovering/Resolving]
  - Nerve compression [Unknown]
  - Peripheral swelling [Unknown]
  - Hyperhidrosis [Unknown]
  - Muscle twitching [Not Recovered/Not Resolved]
  - Movement disorder [Unknown]
  - Therapeutic product effect decreased [Not Recovered/Not Resolved]
  - Amblyopia [Not Recovered/Not Resolved]
  - Hidradenitis [Not Recovered/Not Resolved]
  - Depression [Not Recovered/Not Resolved]
  - Weight decreased [Recovering/Resolving]

NARRATIVE: CASE EVENT DATE: 20230101
